FAERS Safety Report 14855549 (Version 2)
Quarter: 2018Q4

REPORT INFORMATION
  Report Type: Spontaneous
  Country: US (occurrence: US)
  Receive Date: 20180507
  Receipt Date: 20181128
  Transmission Date: 20190204
  Serious: Yes (Other)
  Sender: FDA-Public Use
  Company Number: US-ROCHE-1939816

PATIENT
  Sex: Female

DRUGS (5)
  1. DELSYM [Concomitant]
     Active Substance: DEXTROMETHORPHAN
  2. VITAMIN A [Concomitant]
     Active Substance: VITAMIN A
  3. ESBRIET [Suspect]
     Active Substance: PIRFENIDONE
     Indication: IDIOPATHIC PULMONARY FIBROSIS
     Route: 048
     Dates: start: 20160101
  4. FISH OIL [Concomitant]
     Active Substance: FISH OIL
  5. ESBRIET [Suspect]
     Active Substance: PIRFENIDONE
     Route: 048
     Dates: start: 20160913

REACTIONS (6)
  - Sputum discoloured [Unknown]
  - Ill-defined disorder [Unknown]
  - Cough [Unknown]
  - Lung disorder [Unknown]
  - Gait disturbance [Unknown]
  - Medication error [Unknown]
